FAERS Safety Report 10363735 (Version 1)
Quarter: 2014Q3

REPORT INFORMATION
  Report Type: Spontaneous
  Country: US (occurrence: US)
  Receive Date: 20140805
  Receipt Date: 20140805
  Transmission Date: 20150326
  Serious: Yes (Death, Other)
  Sender: FDA-Public Use
  Company Number: US-CELGENEUS-163-20785-14080439

PATIENT
  Age: 64 Year
  Sex: Female

DRUGS (1)
  1. THALOMID [Suspect]
     Active Substance: THALIDOMIDE
     Indication: HEPATIC ANGIOSARCOMA
     Route: 048

REACTIONS (4)
  - Hepatic failure [Fatal]
  - Renal failure [Fatal]
  - Oesophageal varices haemorrhage [Fatal]
  - Hypotension [Fatal]
